FAERS Safety Report 8059591-4 (Version None)
Quarter: 2012Q1

REPORT INFORMATION
  Report Type: 
  Country: None (occurrence: None)
  Receive Date: 20120120
  Receipt Date: 20120113
  Transmission Date: 20120608
  Serious: Yes (Death, Other)
  Sender: FDA-Public Use
  Company Number: ES-CELGENEUS-144-21880-11021643

PATIENT
  Sex: Female
  Weight: 48 kg

DRUGS (9)
  1. CYCLOPHOSPHAMIDE [Suspect]
     Indication: MULTIPLE MYELOMA
     Dosage: 25 MILLIGRAM
     Route: 065
  2. MORPHICS [Concomitant]
     Route: 065
  3. REVLIMID [Suspect]
     Indication: MULTIPLE MYELOMA
     Dosage: 15 MILLIGRAM
     Route: 048
     Dates: end: 20101102
  4. PREDNISONE [Suspect]
     Dosage: 25 MILLIGRAM
     Route: 065
  5. BEMIPARIN [Concomitant]
     Route: 065
  6. FOLIC [Concomitant]
     Route: 065
  7. ALLOPURINOL [Concomitant]
     Route: 065
  8. SEPTRIM [Concomitant]
     Route: 065
  9. OMEPRAZOLE [Concomitant]
     Route: 065

REACTIONS (2)
  - HAEMATOTOXICITY [None]
  - MULTIPLE MYELOMA [None]
